FAERS Safety Report 16175952 (Version 1)
Quarter: 2019Q2

REPORT INFORMATION
  Report Type: Spontaneous
  Country: FI (occurrence: FI)
  Receive Date: 20190409
  Receipt Date: 20190409
  Transmission Date: 20190711
  Serious: Yes (Other)
  Sender: FDA-Public Use
  Company Number: FI-JNJFOC-20190405250

PATIENT
  Sex: Male

DRUGS (1)
  1. XEPLION [Suspect]
     Active Substance: PALIPERIDONE PALMITATE
     Indication: PSYCHOTIC DISORDER
     Route: 030

REACTIONS (10)
  - Weight increased [Unknown]
  - Sleep disorder [Unknown]
  - Decreased interest [Unknown]
  - Physical disability [Unknown]
  - Erectile dysfunction [Unknown]
  - Emotional poverty [Unknown]
  - Tinnitus [Unknown]
  - Akathisia [Unknown]
  - Nightmare [Unknown]
  - Memory impairment [Unknown]
